FAERS Safety Report 4725038-6 (Version None)
Quarter: 2005Q3

REPORT INFORMATION
  Report Type: 
  Country: None (occurrence: None)
  Receive Date: 20050722
  Receipt Date: 20050709
  Transmission Date: 20060218
  Serious: Yes (Hospitalization, Other)
  Sender: FDA-Public Use
  Company Number: 2005072203

PATIENT
  Sex: Female
  Weight: 81.6475 kg

DRUGS (11)
  1. BEXTRA [Suspect]
     Indication: OSTEOARTHRITIS
     Dosage: 10 MG (10 MG, 1 IN 1 D), ORAL
     Route: 048
     Dates: start: 20040323, end: 20040101
  2. CELEBREX [Suspect]
     Indication: OSTEOARTHRITIS
     Dosage: (1 IN 1 D), ORAL
     Route: 048
     Dates: start: 20000101, end: 20040701
  3. VIOXX [Suspect]
     Indication: ILL-DEFINED DISORDER
  4. LOPRESSOR [Concomitant]
  5. ISOSORBIDE (ISOSORBIDE) [Concomitant]
  6. METOPROLOL TARTRATE [Concomitant]
  7. PRAVACHOL [Concomitant]
  8. TRIAMTERENE (TRIAMTERENE) [Concomitant]
  9. PAXIL [Concomitant]
  10. XANAX [Concomitant]
  11. VITAMIN E [Concomitant]

REACTIONS (13)
  - ASTHENIA [None]
  - BLOOD TEST ABNORMAL [None]
  - BODY TEMPERATURE INCREASED [None]
  - CHEST WALL PAIN [None]
  - DEHYDRATION [None]
  - DIARRHOEA [None]
  - DRUG INEFFECTIVE [None]
  - FALL [None]
  - INFLUENZA [None]
  - MALAISE [None]
  - PAIN [None]
  - PNEUMONIA [None]
  - VOMITING [None]
